FAERS Safety Report 24718505 (Version 1)
Quarter: 2024Q4

REPORT INFORMATION
  Report Type: Spontaneous
  Country: US (occurrence: None)
  Receive Date: 20241210
  Receipt Date: 20241210
  Transmission Date: 20250114
  Serious: Yes (Hospitalization)
  Sender: Public
  Company Number: None

PATIENT
  Age: 52 Year
  Sex: Female
  Weight: 64 kg

DRUGS (1)
  1. ALIROCUMAB [Suspect]
     Active Substance: ALIROCUMAB
     Dosage: 75.00 MG
     Dates: start: 20210604, end: 20211025

REACTIONS (9)
  - Dizziness [None]
  - Headache [None]
  - Hypertension [None]
  - Blood pressure fluctuation [None]
  - Chest pain [None]
  - Visual impairment [None]
  - Presyncope [None]
  - Abdominal pain upper [None]
  - Therapy cessation [None]

NARRATIVE: CASE EVENT DATE: 20211019
